FAERS Safety Report 4981276-9 (Version None)
Quarter: 2006Q1

REPORT INFORMATION
  Report Type: 
  Country: None (occurrence: None)
  Receive Date: 20060317
  Receipt Date: 20060403
  Transmission Date: 20060701
  Serious: Yes (Hospitalization)
  Sender: FDA-Public Use
  Company Number: THYM-10917

PATIENT
  Age: 22 Year
  Sex: Female
  Weight: 72.7 kg

DRUGS (6)
  1. THYMOGLOBULIN [Suspect]
     Indication: RENAL TRANSPLANT
     Dosage: 6 MG/KG ONCE IV
     Route: 042
     Dates: start: 20060104, end: 20060105
  2. VALCYTE [Concomitant]
  3. BACTRIM [Concomitant]
  4. SOLU-MEDROL [Concomitant]
  5. BENADRYL [Concomitant]
  6. TYLENOL (CAPLET) [Concomitant]

REACTIONS (5)
  - ERYTHEMA [None]
  - PLATELET COUNT DECREASED [None]
  - PYREXIA [None]
  - RASH GENERALISED [None]
  - THROMBOCYTOPENIA [None]
